FAERS Safety Report 6037793-6 (Version None)
Quarter: 2009Q1

REPORT INFORMATION
  Report Type: 
  Country: None (occurrence: None)
  Receive Date: 20090113
  Receipt Date: 20081230
  Transmission Date: 20090719
  Serious: Yes (Hospitalization, Other)
  Sender: FDA-Public Use
  Company Number: 2009AL000102

PATIENT
  Age: 47 Year
  Sex: Female

DRUGS (7)
  1. SERTRALINE HCL [Suspect]
     Indication: DEPRESSION
     Dosage: 200 MG;QD;PO
     Route: 048
  2. CLOZARIL [Concomitant]
  3. LAMOTRIGINE [Concomitant]
  4. DEPAKOTE [Concomitant]
  5. QUETIAPINE FUMARATE [Concomitant]
  6. CLONAZEPAM [Concomitant]
  7. FLUTICASONE PROPIONATE W/SALMETEROL XINAFOATE [Concomitant]

REACTIONS (9)
  - BODY TEMPERATURE INCREASED [None]
  - C-REACTIVE PROTEIN INCREASED [None]
  - CARDIAC DISORDER [None]
  - CARDIOMYOPATHY [None]
  - LOWER RESPIRATORY TRACT INFECTION [None]
  - MONOCYTE COUNT INCREASED [None]
  - OXYGEN SATURATION DECREASED [None]
  - TACHYCARDIA [None]
  - TACHYPNOEA [None]
